FAERS Safety Report 4645966-X (Version None)
Quarter: 2005Q2

REPORT INFORMATION
  Report Type: 
  Country: None (occurrence: None)
  Receive Date: 20050425
  Receipt Date: 20050408
  Transmission Date: 20051028
  Serious: Yes (Other)
  Sender: FDA-Public Use
  Company Number: 8010019

PATIENT
  Age: 57 Year
  Sex: Male
  Weight: 113.63 kg

DRUGS (1)
  1. KEPPRA [Suspect]
     Indication: CONVULSION
     Dosage: PO
     Route: 048
     Dates: start: 20040930

REACTIONS (2)
  - ANGINA PECTORIS [None]
  - CARDIAC VALVE DISEASE [None]
